FAERS Safety Report 4406635-4 (Version None)
Quarter: 2004Q3

REPORT INFORMATION
  Report Type: 
  Country: None (occurrence: None)
  Receive Date: 20040723
  Receipt Date: 20040623
  Transmission Date: 20050211
  Serious: Yes (Hospitalization, Other)
  Sender: FDA-Public Use
  Company Number: PHBS2004SE08509

PATIENT
  Age: 78 Year
  Sex: Male

DRUGS (6)
  1. ZOMETA [Suspect]
     Indication: MULTIPLE MYELOMA
     Dosage: 4 MG
     Route: 042
     Dates: start: 20031205
  2. NORVASC [Concomitant]
     Indication: HYPERTENSION
     Route: 065
  3. IMPORTAL [Concomitant]
     Route: 065
  4. SELOKEN [Concomitant]
     Route: 065
  5. ALLOPURINOL [Concomitant]
     Route: 065
  6. PLAVIX [Concomitant]
     Route: 065

REACTIONS (8)
  - CHEST PAIN [None]
  - DEPRESSED LEVEL OF CONSCIOUSNESS [None]
  - DYSARTHRIA [None]
  - HYPOCALCAEMIA [None]
  - HYPOKALAEMIA [None]
  - HYPOMAGNESAEMIA [None]
  - HYPOTENSION [None]
  - MUSCLE CRAMP [None]
